FAERS Safety Report 6068075-4 (Version None)
Quarter: 2009Q1

REPORT INFORMATION
  Report Type: 
  Country: None (occurrence: None)
  Receive Date: 20090206
  Receipt Date: 20090128
  Transmission Date: 20090719
  Serious: Yes (Hospitalization, Other)
  Sender: FDA-Public Use
  Company Number: US-AMGEN-QUU330917

PATIENT
  Sex: Male

DRUGS (2)
  1. ENBREL [Suspect]
     Indication: RHEUMATOID ARTHRITIS
     Dates: start: 20081201
  2. PREDNISONE [Concomitant]

REACTIONS (4)
  - AGGRESSION [None]
  - HALLUCINATION, AUDITORY [None]
  - PARANOIA [None]
  - SUICIDAL IDEATION [None]
